FAERS Safety Report 26166184 (Version 1)
Quarter: 2025Q4

REPORT INFORMATION
  Report Type: Other
  Country: US (occurrence: US)
  Receive Date: 20251216
  Receipt Date: 20251216
  Transmission Date: 20260117
  Serious: Yes (Hospitalization, Other)
  Sender: HLS THERAPEUTICS
  Company Number: US-HLS-202500430

PATIENT
  Age: 18 Year
  Sex: Male

DRUGS (6)
  1. CLOZAPINE [Suspect]
     Active Substance: CLOZAPINE
     Indication: Psychotic disorder
     Dosage: RESTART CLOZAPINE TITRATION WITH?25 MG QHS
     Route: 065
  2. CLOZAPINE [Suspect]
     Active Substance: CLOZAPINE
     Indication: Schizophrenia
     Dosage: RESTART CLOZAPINE TITRATION WITH?25 MG QHS
     Route: 065
  3. CLOZAPINE [Suspect]
     Active Substance: CLOZAPINE
     Indication: Autism spectrum disorder
     Dosage: RESTART CLOZAPINE TITRATION WITH?25 MG QHS
     Route: 065
  4. CLOZAPINE [Suspect]
     Active Substance: CLOZAPINE
     Indication: Psychotic disorder
     Dosage: AT BEDTIME
     Route: 065
  5. CLOZAPINE [Suspect]
     Active Substance: CLOZAPINE
     Indication: Schizophrenia
     Dosage: AT BEDTIME
     Route: 065
  6. CLOZAPINE [Suspect]
     Active Substance: CLOZAPINE
     Indication: Autism spectrum disorder
     Dosage: AT BEDTIME
     Route: 065

REACTIONS (9)
  - Catatonia [Unknown]
  - Product use in unapproved indication [Unknown]
  - Dystonia [Unknown]
  - Mutism [Unknown]
  - Myotonia [Unknown]
  - Treatment noncompliance [Unknown]
  - Psychotic disorder [Unknown]
  - Nausea [Unknown]
  - Vomiting [Unknown]
